FAERS Safety Report 8658261 (Version 3)
Quarter: 2012Q4

REPORT INFORMATION
  Report Type: 
  Country: GB (occurrence: GB)
  Receive Date: 20120625
  Receipt Date: 20121009
  Transmission Date: 20130627
  Serious: No
  Sender: FDA-Public Use
  Company Number: GB-009507513-2012SP032385

PATIENT
  Age: 60 Year
  Sex: Female
  Weight: 92 kg

DRUGS (13)
  1. SYCREST [Suspect]
     Indication: BIPOLAR DISORDER
     Dosage: 5 mg, bid
     Route: 060
     Dates: start: 20120601, end: 20120831
  2. PERINDOPRIL [Concomitant]
     Dosage: UNK UNK, Unknown
  3. ASPIRIN [Concomitant]
     Dosage: UNK UNK, Unknown
  4. BISOPROLOL [Concomitant]
     Dosage: UNK UNK, Unknown
  5. FUROSEMIDE [Concomitant]
     Dosage: UNK UNK, Unknown
  6. GLICLAZIDE [Concomitant]
     Dosage: UNK UNK, Unknown
  7. METFORMIN [Concomitant]
     Dosage: UNK UNK, Unknown
  8. SPIRONOLACTONE [Concomitant]
     Dosage: UNK UNK, Unknown
  9. OLANZAPINE [Concomitant]
     Dosage: 5 mg, bid
  10. LAMOTRIGINE [Concomitant]
     Dosage: UNK UNK, Unknown
  11. REBOXETINE [Concomitant]
     Dosage: UNK UNK, Unknown
     Route: 065
  12. SIMVASTATIN [Concomitant]
     Dosage: UNK UNK, Unknown
  13. INSULIN [Concomitant]
     Indication: DIABETES MELLITUS
     Dosage: UNK
     Dates: start: 201205

REACTIONS (6)
  - Blood glucose increased [Recovered/Resolved]
  - Dyspnoea [Unknown]
  - Somnolence [Unknown]
  - Paraesthesia oral [Unknown]
  - Depression [Recovered/Resolved]
  - Feeling abnormal [Recovered/Resolved]
